FAERS Safety Report 9378621 (Version 1)
Quarter: 2013Q2

REPORT INFORMATION
  Report Type: Spontaneous
  Country: TN (occurrence: None)
  Receive Date: 20130626
  Receipt Date: 20130626
  Transmission Date: 20140414
  Serious: Yes (Hospitalization, Other)
  Sender: FDA-Public Use
  Company Number: 2013P1010033

PATIENT
  Age: 41 Year
  Sex: Female

DRUGS (4)
  1. RIFAMPIN [Suspect]
     Indication: TUBERCULOSIS
  2. ISONIAZID [Suspect]
     Indication: TUBERCULOSIS
  3. PYRAZINAMIDE [Suspect]
     Indication: TUBERCULOSIS
  4. ETHAMBUTOL [Suspect]
     Indication: TUBERCULOSIS

REACTIONS (6)
  - Pyrexia [None]
  - Dyspnoea [None]
  - Chest pain [None]
  - Generalised oedema [None]
  - Rash maculo-papular [None]
  - Alanine aminotransferase increased [None]
